FAERS Safety Report 9320963 (Version 2)
Quarter: 2013Q2

REPORT INFORMATION
  Report Type: Report from Study
  Country: GB (occurrence: None)
  Receive Date: 20130528
  Receipt Date: 20130528
  Transmission Date: 20140414
  Serious: Yes (Hospitalization)
  Sender: FDA-Public Use
  Company Number: 2013AP000047

PATIENT
  Age: 54 Year
  Sex: Female
  Weight: 58.8 kg

DRUGS (5)
  1. DEFERIPRONE [Suspect]
     Indication: PARKINSON^S DISEASE
     Route: 048
     Dates: start: 20121106, end: 20121224
  2. REQUIP [Concomitant]
  3. RASAGILINE [Concomitant]
  4. CITALOPRAM [Concomitant]
  5. DOMPERIDONE [Concomitant]

REACTIONS (3)
  - Agranulocytosis [None]
  - Lethargy [None]
  - Pyrexia [None]
